FAERS Safety Report 24793561 (Version 1)
Quarter: 2024Q4

REPORT INFORMATION
  Report Type: Spontaneous
  Country: IT (occurrence: IT)
  Receive Date: 20241231
  Receipt Date: 20241231
  Transmission Date: 20250115
  Serious: Yes (Other)
  Sender: B BRAUN
  Company Number: IT-B.Braun Medical Inc.-2168107

PATIENT
  Sex: Male
  Weight: 2.49 kg

DRUGS (5)
  1. ACETAMINOPHEN [Suspect]
     Active Substance: ACETAMINOPHEN
     Indication: Pyrexia
  2. IMIPENEM [Suspect]
     Active Substance: IMIPENEM
  3. GENTAMICIN [Suspect]
     Active Substance: GENTAMICIN
  4. FERRIC CARBOXYMALTOSE [Suspect]
     Active Substance: FERRIC CARBOXYMALTOSE
  5. AMPICILLIN [Suspect]
     Active Substance: AMPICILLIN

REACTIONS (8)
  - Neonatal respiratory distress syndrome [Recovered/Resolved]
  - Atrial septal defect [Recovered/Resolved]
  - Vasculitis [Recovered/Resolved]
  - Irritability [Recovered/Resolved]
  - Condition aggravated [Recovered/Resolved]
  - Premature baby [Recovered/Resolved]
  - Foetal exposure during pregnancy [Recovered/Resolved]
  - Opisthotonus [Recovered/Resolved]
